FAERS Safety Report 8238120 (Version 4)
Quarter: 2014Q1

REPORT INFORMATION
  Report Type: Report from Study
  Country: CA (occurrence: CA)
  Receive Date: 20111109
  Receipt Date: 20140225
  Transmission Date: 20141002
  Serious: Yes (Other)
  Sender: FDA-Public Use
  Company Number: PHHY2011CA96122

PATIENT
  Age: 59 Year
  Sex: Female

DRUGS (3)
  1. ZOMETA [Suspect]
     Indication: BREAST CANCER
     Dosage: 4 MG, EVERY 4 MONTHS
     Route: 042
     Dates: start: 20091021
  2. ZOMETA [Suspect]
     Dosage: 4 MG, EVERY 6 MONTHS
     Route: 042
  3. FEMARA [Concomitant]
     Dosage: UNK UKN, UNK

REACTIONS (7)
  - Thyroiditis subacute [Recovering/Resolving]
  - Hypothyroidism [Recovering/Resolving]
  - Goitre [Recovering/Resolving]
  - Viral infection [Recovering/Resolving]
  - Oropharyngeal pain [Recovering/Resolving]
  - Neck pain [Recovering/Resolving]
  - Malaise [Unknown]
